FAERS Safety Report 21268884 (Version 2)
Quarter: 2022Q3

REPORT INFORMATION
  Report Type: Spontaneous
  Country: FR (occurrence: FR)
  Receive Date: 20220830
  Receipt Date: 20220902
  Transmission Date: 20221027
  Serious: Yes (Disabling)
  Sender: FDA-Public Use
  Company Number: ALC2022FR003586

PATIENT

DRUGS (3)
  1. CYCLOPENTOLATE HYDROCHLORIDE [Suspect]
     Active Substance: CYCLOPENTOLATE HYDROCHLORIDE
     Indication: Mydriasis
     Dosage: 1 DRP IN EACH EYE 1 HOUR BEFORE EXAMINATION
     Route: 047
     Dates: start: 20220727, end: 20220727
  2. CYCLOPENTOLATE HYDROCHLORIDE [Suspect]
     Active Substance: CYCLOPENTOLATE HYDROCHLORIDE
     Dosage: 1 DRP IN EACH EYE 55 MIN BEFORE EXAMINATION
     Route: 047
     Dates: start: 20220727, end: 20220727
  3. CYCLOPENTOLATE HYDROCHLORIDE [Suspect]
     Active Substance: CYCLOPENTOLATE HYDROCHLORIDE
     Dosage: 1 DRP IN EACH EYE 50 MIN BEFORE EXAMINATION
     Route: 047
     Dates: start: 20220727, end: 20220727

REACTIONS (6)
  - Insomnia [Recovered/Resolved]
  - Mydriasis [Recovered/Resolved]
  - Headache [Recovered/Resolved]
  - Photophobia [Recovered/Resolved]
  - Off label use [Unknown]
  - Therapeutic product effect prolonged [Recovered/Resolved]

NARRATIVE: CASE EVENT DATE: 20220727
